APPROVED DRUG PRODUCT: AZEDRA
Active Ingredient: IOBENGUANE I-131
Strength: 15mCi/ML
Dosage Form/Route: SOLUTION;INTRAVENOUS
Application: N209607 | Product #001
Applicant: PROGENICS PHARMACEUTICALS INC
Approved: Jul 30, 2018 | RLD: Yes | RS: No | Type: DISCN